FAERS Safety Report 8150105-7 (Version None)
Quarter: 2012Q1

REPORT INFORMATION
  Report Type: 
  Country: None (occurrence: None)
  Receive Date: 20120220
  Receipt Date: 20120213
  Transmission Date: 20120608
  Serious: Yes (Hospitalization)
  Sender: FDA-Public Use
  Company Number: US-BIOGENIDEC-2011BI039249

PATIENT
  Age: 27 Year
  Sex: Female

DRUGS (4)
  1. ASPIRIN [Concomitant]
     Indication: PROPHYLAXIS
  2. TYSABRI [Suspect]
     Indication: MULTIPLE SCLEROSIS
     Route: 042
     Dates: start: 20090916, end: 20110901
  3. TYSABRI [Suspect]
     Route: 042
     Dates: start: 20120202
  4. PROTONIX [Concomitant]
     Indication: PROPHYLAXIS

REACTIONS (2)
  - MULTIPLE SCLEROSIS RELAPSE [None]
  - MULTIPLE SCLEROSIS [None]
